FAERS Safety Report 16591002 (Version 1)
Quarter: 2019Q3

REPORT INFORMATION
  Report Type: Spontaneous
  Country: US (occurrence: US)
  Receive Date: 20190604
  Receipt Date: 20190604
  Transmission Date: 20191004
  Serious: Yes (Hospitalization)
  Sender: FDA-Public Use
  Company Number: None

PATIENT
  Age: 64 Year
  Sex: Male

DRUGS (1)
  1. ROSUVASTATIN. [Suspect]
     Active Substance: ROSUVASTATIN
     Indication: HYPERLIPIDAEMIA
     Route: 048
     Dates: start: 20180703, end: 20190401

REACTIONS (10)
  - Nausea [None]
  - Hypotension [None]
  - Fluid overload [None]
  - Oedema peripheral [None]
  - Vomiting [None]
  - Metabolic acidosis [None]
  - Rhabdomyolysis [None]
  - Dyspnoea [None]
  - Abdominal pain upper [None]
  - Acute kidney injury [None]

NARRATIVE: CASE EVENT DATE: 20190401
